FAERS Safety Report 20521052 (Version 1)
Quarter: 2022Q1

REPORT INFORMATION
  Report Type: Report from Study
  Country: US (occurrence: None)
  Receive Date: 20220225
  Receipt Date: 20220225
  Transmission Date: 20220423
  Serious: Yes (Other)
  Sender: FDA-Public Use
  Company Number: 2022A086021

PATIENT
  Sex: Male

DRUGS (2)
  1. TAGRISSO [Suspect]
     Active Substance: OSIMERTINIB
     Indication: Lung neoplasm malignant
     Dosage: HAD TO STOP TAGRISSO IN SUMMER 6 MONTHS AGO, A FEW WEEKS, BECAUSE OF JAW INFECTION, AND ALSO IN S...
     Route: 048
  2. TAGRISSO [Suspect]
     Active Substance: OSIMERTINIB
     Indication: Lung neoplasm malignant
     Route: 048
     Dates: start: 202011

REACTIONS (2)
  - Osteomyelitis [Unknown]
  - Nausea [Unknown]
